FAERS Safety Report 12699507 (Version 1)
Quarter: 2016Q3

REPORT INFORMATION
  Report Type: Spontaneous
  Country: US (occurrence: US)
  Receive Date: 20160830
  Receipt Date: 20160830
  Transmission Date: 20161109
  Serious: No
  Sender: FDA-Public Use
  Company Number: US-SUPERNUS PHARMACEUTICALS, INC.-2016SUP00135

PATIENT
  Sex: Female

DRUGS (2)
  1. TROKENDI XR [Suspect]
     Active Substance: TOPIRAMATE
  2. ^INJECTIONS^ (UNSPECIFIED) [Suspect]
     Active Substance: UNSPECIFIED INGREDIENT

REACTIONS (3)
  - Headache [Not Recovered/Not Resolved]
  - Impaired work ability [None]
  - Malaise [Not Recovered/Not Resolved]

NARRATIVE: CASE EVENT DATE: 201606
